FAERS Safety Report 9537275 (Version 2)
Quarter: 2013Q3

REPORT INFORMATION
  Report Type: Spontaneous
  Country: US (occurrence: US)
  Receive Date: 20130919
  Receipt Date: 20130919
  Transmission Date: 20140515
  Serious: Yes (Other)
  Sender: FDA-Public Use
  Company Number: US-PURDUE-USA-2013-0099080

PATIENT
  Sex: Female

DRUGS (1)
  1. INTERMEZZO [Suspect]
     Indication: INSOMNIA
     Dosage: 1.75 MG, HS
     Route: 060
     Dates: start: 20130206, end: 20130210

REACTIONS (1)
  - Hallucination [Recovered/Resolved]
